FAERS Safety Report 6417494-2 (Version None)
Quarter: 2009Q4

REPORT INFORMATION
  Report Type: 
  Country: None (occurrence: None)
  Receive Date: 20091028
  Receipt Date: 20091023
  Transmission Date: 20100525
  Serious: Yes (Death, Hospitalization, Other)
  Sender: FDA-Public Use
  Company Number: US-BRISTOL-MYERS SQUIBB COMPANY-14830715

PATIENT
  Age: 79 Year
  Sex: Female

DRUGS (9)
  1. COUMADIN [Suspect]
     Indication: THROMBOSIS PROPHYLAXIS
     Route: 065
  2. THALOMID [Suspect]
     Indication: MULTIPLE MYELOMA
     Route: 048
     Dates: start: 20090512, end: 20090527
  3. ZOMETA [Concomitant]
     Route: 065
  4. ATIVAN [Concomitant]
     Route: 065
  5. MORPHINE [Concomitant]
     Route: 065
  6. MOBIC [Concomitant]
     Route: 065
  7. LYRICA [Concomitant]
     Route: 065
  8. DECADRON [Concomitant]
     Route: 065
  9. VITAMIN K TAB [Concomitant]
     Indication: INTERNATIONAL NORMALISED RATIO INCREASED
     Route: 065

REACTIONS (11)
  - ABDOMINAL PAIN [None]
  - CONSTIPATION [None]
  - DEATH [None]
  - DYSURIA [None]
  - FATIGUE [None]
  - INTERNATIONAL NORMALISED RATIO INCREASED [None]
  - MULTIPLE MYELOMA [None]
  - PYREXIA [None]
  - RESTLESS LEGS SYNDROME [None]
  - SOMNOLENCE [None]
  - SYNCOPE [None]
